FAERS Safety Report 8233844-9 (Version None)
Quarter: 2012Q1

REPORT INFORMATION
  Report Type: 
  Country: None (occurrence: None)
  Receive Date: 20120326
  Receipt Date: 20120324
  Transmission Date: 20120608
  Serious: Yes (Other)
  Sender: FDA-Public Use
  Company Number: US-PFIZER INC-2012019896

PATIENT
  Sex: Female
  Weight: 72.562 kg

DRUGS (17)
  1. TEGRETOL [Concomitant]
     Indication: BIPOLAR DISORDER
     Dosage: 200 MG, 4X/DAY
  2. PROMETHAZINE [Concomitant]
     Dosage: 25 MG, UNK
  3. TRAZODONE [Concomitant]
     Dosage: 100 MG, 1X/DAY
  4. PROAIR HFA [Concomitant]
     Dosage: 8.5 MG, UNK
     Route: 055
  5. FLUTICASONE [Concomitant]
     Dosage: 50 MG, 2X/DAY
     Route: 045
  6. POTASSIUM [Concomitant]
     Dosage: UNK
  7. TOVIAZ [Concomitant]
     Dosage: UNK
  8. CHANTIX [Suspect]
     Indication: SMOKING CESSATION THERAPY
     Dosage: 0.5 MG, 1X/DAY
     Route: 048
     Dates: start: 20120120, end: 20120101
  9. XANAX [Concomitant]
     Indication: BIPOLAR DISORDER
     Dosage: 1 MG, 2X/DAY
  10. VALIUM [Concomitant]
     Indication: BIPOLAR DISORDER
     Dosage: 10 MG, 3X/DAY
  11. ACETYLSALICYLIC ACID AND BUTALBITAL AND CAFFEINE [Concomitant]
     Indication: MIGRAINE
     Dosage: UNK, 1X/DAY
  12. AMOXICILLIN [Concomitant]
     Dosage: 875 MG, UNK
  13. CALCIUM [Concomitant]
     Dosage: UNK
  14. CHANTIX [Suspect]
     Dosage: 1 MG, 2X/DAY
     Route: 048
     Dates: start: 20120101, end: 20120101
  15. SYNTHROID [Concomitant]
     Indication: THYROID DISORDER
     Dosage: 0.15 MG, 1X/DAY
  16. CELEXA [Concomitant]
     Indication: DEPRESSION
     Dosage: 40 MG, 2X/DAY
  17. CHANTIX [Suspect]
     Dosage: UNK
     Route: 048
     Dates: start: 20120101

REACTIONS (9)
  - INSOMNIA [None]
  - IRRITABILITY [None]
  - TOBACCO USER [None]
  - HOMICIDAL IDEATION [None]
  - FEELING ABNORMAL [None]
  - ANGER [None]
  - NAUSEA [None]
  - DEPRESSED MOOD [None]
  - EMOTIONAL DISORDER [None]
